FAERS Safety Report 15023840 (Version 1)
Quarter: 2018Q2

REPORT INFORMATION
  Report Type: Spontaneous
  Country: AT (occurrence: AT)
  Receive Date: 20180618
  Receipt Date: 20180618
  Transmission Date: 20180711
  Serious: Yes (Other)
  Sender: FDA-Public Use
  Company Number: PHHY2018AT019108

PATIENT
  Age: 51 Year
  Sex: Male
  Weight: 79 kg

DRUGS (9)
  1. ENTRESTO [Suspect]
     Active Substance: SACUBITRIL\VALSARTAN
     Indication: DYSPNOEA
  2. HYPREN [Concomitant]
     Indication: PRODUCT USED FOR UNKNOWN INDICATION
     Dosage: 2.5 MG, BID (1-0-1)
     Route: 065
  3. CONCOR [Concomitant]
     Active Substance: BISOPROLOL FUMARATE
     Indication: PRODUCT USED FOR UNKNOWN INDICATION
     Dosage: 2.5 MG, BID  (1-0-1)
     Route: 065
  4. ENTRESTO [Suspect]
     Active Substance: SACUBITRIL\VALSARTAN
     Indication: ASTHENIA
     Dosage: 200 MG, QD (97/103 MG 2X1)
     Route: 065
     Dates: start: 201707
  5. INSPRA [Concomitant]
     Active Substance: EPLERENONE
     Indication: PRODUCT USED FOR UNKNOWN INDICATION
     Dosage: 25 MG, QD (1-0-0)
     Route: 065
  6. ELIQUIS [Concomitant]
     Active Substance: APIXABAN
     Dosage: 5 MG, TID (2X1)
     Route: 065
  7. ELIQUIS [Concomitant]
     Active Substance: APIXABAN
     Indication: PRODUCT USED FOR UNKNOWN INDICATION
     Dosage: 5 MG, BID (1-0-1)
     Route: 065
  8. ENTRESTO [Suspect]
     Active Substance: SACUBITRIL\VALSARTAN
     Indication: CARDIAC FAILURE
     Dosage: 100 MG, QD (49/51 MG 2X1))
     Route: 065
     Dates: start: 201706
  9. INSPRA [Concomitant]
     Active Substance: EPLERENONE
     Dosage: 50 MG, BID ((1X1)
     Route: 065

REACTIONS (9)
  - Mitral valve incompetence [Unknown]
  - Atrial thrombosis [Unknown]
  - Oedema peripheral [Unknown]
  - Atrial fibrillation [Unknown]
  - Rhonchi [Unknown]
  - Venous pressure jugular increased [Unknown]
  - Viral test positive [Unknown]
  - Ventricular hypokinesia [Unknown]
  - Breath sounds abnormal [Unknown]
